FAERS Safety Report 8567107 (Version 4)
Quarter: 2014Q2

REPORT INFORMATION
  Report Type: Spontaneous
  Country: AU (occurrence: AU)
  Receive Date: 20120517
  Receipt Date: 20140429
  Transmission Date: 20141212
  Serious: Yes (Hospitalization, Other)
  Sender: FDA-Public Use
  Company Number: AU-ALEXION PHARMACEUTICALS INC.-A201200935

PATIENT
  Sex: 0

DRUGS (5)
  1. SOLIRIS 300MG [Suspect]
     Indication: HAEMOLYTIC URAEMIC SYNDROME
     Dosage: 900 MG, QW FOR 4 WEEKS
     Route: 042
     Dates: start: 20120323
  2. SOLIRIS 300MG [Suspect]
     Dosage: 1200 MG, QW WEEK 5
     Route: 042
  3. SOLIRIS 300MG [Suspect]
     Dosage: 1200 MG, Q2W
     Route: 042
  4. ZANIDIP [Concomitant]
     Indication: PRODUCT USED FOR UNKNOWN INDICATION
     Dosage: UNK
     Route: 065
  5. ANTIHYPERTENSIVES [Concomitant]
     Indication: HYPERTENSION
     Route: 065

REACTIONS (4)
  - Convulsion [Recovered/Resolved]
  - Retinopathy hypertensive [Unknown]
  - Posterior reversible encephalopathy syndrome [Recovered/Resolved]
  - Malignant hypertension [Recovered/Resolved]
